FAERS Safety Report 6504317-6 (Version None)
Quarter: 2009Q4

REPORT INFORMATION
  Report Type: 
  Country: None (occurrence: None)
  Receive Date: 20091215
  Receipt Date: 20091207
  Transmission Date: 20100525
  Serious: Yes (Hospitalization)
  Sender: FDA-Public Use
  Company Number: 2009029275

PATIENT
  Age: 47 Year
  Sex: Male

DRUGS (7)
  1. TRISENOX [Suspect]
     Indication: ACUTE PROMYELOCYTIC LEUKAEMIA
     Dosage: (17 MG), INTRAVENOUS DRIP
     Route: 041
     Dates: start: 20090811
  2. TRETINOIN [Suspect]
     Indication: ACUTE PROMYELOCYTIC LEUKAEMIA
     Dosage: (50 MG), ORAL
     Route: 048
     Dates: start: 20090807
  3. ALLOPURINOL [Concomitant]
  4. SIMVASTATIN [Concomitant]
  5. CORSODYL (CHLORHEXIDINE GLUCONATE) [Concomitant]
  6. DIFFLAM (BENZYDAMINE HYDROCHLORIDE) [Concomitant]
  7. NYSTATIN [Concomitant]

REACTIONS (23)
  - ARTERIOSPASM CORONARY [None]
  - ARTHRALGIA [None]
  - ATELECTASIS [None]
  - BACK PAIN [None]
  - BLOOD ALKALINE PHOSPHATASE INCREASED [None]
  - BLOOD PRESSURE DECREASED [None]
  - BUNDLE BRANCH BLOCK RIGHT [None]
  - COAGULOPATHY [None]
  - DIZZINESS [None]
  - ELECTROCARDIOGRAM ST SEGMENT ELEVATION [None]
  - GROIN PAIN [None]
  - IMMOBILE [None]
  - INFLAMMATION [None]
  - JOINT EFFUSION [None]
  - MITRAL VALVE INCOMPETENCE [None]
  - MUSCLE SWELLING [None]
  - MUSCULOSKELETAL PAIN [None]
  - NAUSEA [None]
  - PLEURAL EFFUSION [None]
  - PYREXIA [None]
  - VISION BLURRED [None]
  - WEIGHT INCREASED [None]
  - WHITE BLOOD CELL COUNT INCREASED [None]
